FAERS Safety Report 19410148 (Version 1)
Quarter: 2021Q2

REPORT INFORMATION
  Report Type: Report from Study
  Country: None (occurrence: DE)
  Receive Date: 20210614
  Receipt Date: 20210614
  Transmission Date: 20210717
  Serious: Yes (Hospitalization)
  Sender: FDA-Public Use
  Company Number: DE-ABBVIE-20K-062-3543606-00

PATIENT
  Age: 58 Year
  Sex: Male
  Weight: 73 kg

DRUGS (3)
  1. HUMIRA [Suspect]
     Active Substance: ADALIMUMAB
     Route: 058
     Dates: start: 202105, end: 202105
  2. HUMIRA [Suspect]
     Active Substance: ADALIMUMAB
     Route: 058
     Dates: start: 202105
  3. HUMIRA [Suspect]
     Active Substance: ADALIMUMAB
     Indication: CROHN^S DISEASE
     Route: 058
     Dates: start: 20150420, end: 2019

REACTIONS (9)
  - Stoma creation [Recovered/Resolved with Sequelae]
  - Dry skin [Not Recovered/Not Resolved]
  - Cholecystectomy [Recovered/Resolved]
  - Weight decreased [Recovered/Resolved]
  - Ileectomy [Recovering/Resolving]
  - Drug level decreased [Unknown]
  - Enteritis [Not Recovered/Not Resolved]
  - Ileal stenosis [Recovering/Resolving]
  - Stoma closure [Recovered/Resolved]

NARRATIVE: CASE EVENT DATE: 201505
